FAERS Safety Report 18111082 (Version 6)
Quarter: 2020Q4

REPORT INFORMATION
  Report Type: Report from Study
  Country: US (occurrence: US)
  Receive Date: 20200805
  Receipt Date: 20201231
  Transmission Date: 20210113
  Serious: Yes (Hospitalization, Other)
  Sender: FDA-Public Use
  Company Number: US-SHIRE-US202024413

PATIENT
  Age: 33 Year
  Sex: Female

DRUGS (2)
  1. HUMAN NORMAL IMMUNOGLOBULIN; LIQUID 20 [Suspect]
     Active Substance: HUMAN IMMUNOGLOBULIN G
     Indication: PRIMARY IMMUNODEFICIENCY SYNDROME
     Dosage: UNK
     Route: 058
  2. PREDNISONE. [Concomitant]
     Active Substance: PREDNISONE
     Indication: IMMUNE SYSTEM DISORDER
     Dosage: UNK

REACTIONS (13)
  - Mast cell activation syndrome [Not Recovered/Not Resolved]
  - Body temperature fluctuation [Unknown]
  - Headache [Unknown]
  - Bladder injury [Recovering/Resolving]
  - Illness [Not Recovered/Not Resolved]
  - Hypertension [Unknown]
  - Influenza like illness [Unknown]
  - Erythema [Unknown]
  - Cardiac disorder [Not Recovered/Not Resolved]
  - Sinusitis [Not Recovered/Not Resolved]
  - Malaise [Not Recovered/Not Resolved]
  - Nausea [Unknown]
  - Sinus operation [Recovered/Resolved]

NARRATIVE: CASE EVENT DATE: 20200723
